FAERS Safety Report 5110791-2 (Version None)
Quarter: 2006Q3

REPORT INFORMATION
  Report Type: 
  Country: None (occurrence: None)
  Receive Date: 20060919
  Receipt Date: 20060906
  Transmission Date: 20061208
  Serious: Yes (Death, Other)
  Sender: FDA-Public Use
  Company Number: 2006092583

PATIENT
  Age: 32 Year
  Sex: Male

DRUGS (9)
  1. FLUCONAZOLE [Suspect]
     Indication: DRUG USE FOR UNKNOWN INDICATION
     Dosage: SEE IMAGE, ORAL
     Route: 048
     Dates: start: 20060624, end: 20060628
  2. FLUCONAZOLE [Suspect]
     Indication: DRUG USE FOR UNKNOWN INDICATION
     Dosage: SEE IMAGE, ORAL
     Route: 048
     Dates: start: 20060629, end: 20060706
  3. VFEND [Suspect]
     Indication: FUNGAL ENDOCARDITIS
     Dosage: 200 MG (200 MG, 1 IN 1 D)
     Dates: start: 20060714, end: 20060714
  4. VFEND [Suspect]
     Indication: FUNGAL ENDOCARDITIS
     Dosage: 200 MG (200 MG, 1 IN 1 D)
     Dates: start: 20060725, end: 20060727
  5. DILANTIN [Suspect]
     Indication: DRUG USE FOR UNKNOWN INDICATION
     Dosage: ORAL
     Route: 048
     Dates: start: 20060622, end: 20060625
  6. FOSPHENYTOIN SODIUM [Suspect]
     Indication: DRUG USE FOR UNKNOWN INDICATION
     Dosage: 300 MG, INTRAVENOUS
     Route: 042
     Dates: start: 20060624, end: 20060717
  7. AMPHOCIN (AMPHOTERICIN) [Suspect]
     Indication: DRUG USE FOR UNKNOWN INDICATION
     Dosage: INTRAVENOUS
     Route: 042
     Dates: start: 20060707, end: 20060708
  8. MICOFUNGIN (MICAFUNGIN) [Concomitant]
  9. AMIODARONE (AMIODARONE) [Concomitant]

REACTIONS (19)
  - ALANINE AMINOTRANSFERASE INCREASED [None]
  - ANION GAP INCREASED [None]
  - ASPARTATE AMINOTRANSFERASE INCREASED [None]
  - BLOOD BILIRUBIN INCREASED [None]
  - BLOOD CREATININE INCREASED [None]
  - CANDIDIASIS [None]
  - CARBON DIOXIDE DECREASED [None]
  - CEREBRAL HAEMORRHAGE [None]
  - DIALYSIS [None]
  - FUNGAL ENDOCARDITIS [None]
  - HEPATITIS B ANTIBODY POSITIVE [None]
  - INTERNATIONAL NORMALISED RATIO INCREASED [None]
  - LACTIC ACIDOSIS [None]
  - MENTAL STATUS CHANGES [None]
  - METABOLIC DISORDER [None]
  - NERVOUS SYSTEM DISORDER [None]
  - RESPIRATORY DISORDER [None]
  - SEPTIC EMBOLUS [None]
  - WHITE BLOOD CELL COUNT INCREASED [None]
